FAERS Safety Report 19136828 (Version 1)
Quarter: 2021Q2

REPORT INFORMATION
  Report Type: Spontaneous
  Country: CN (occurrence: CN)
  Receive Date: 20210414
  Receipt Date: 20210414
  Transmission Date: 20210717
  Serious: Yes (Other)
  Sender: FDA-Public Use
  Company Number: CN-PURDUE-USA-2021-0244662

PATIENT
  Age: 56 Year
  Sex: Female
  Weight: 55 kg

DRUGS (1)
  1. OXYCONTIN [Suspect]
     Active Substance: OXYCODONE HYDROCHLORIDE
     Indication: LUNG NEOPLASM MALIGNANT
     Dosage: 10 MG, BID
     Route: 048
     Dates: start: 20201008, end: 20201010

REACTIONS (11)
  - Oxygen saturation decreased [Unknown]
  - Lethargy [Unknown]
  - Pupillary light reflex tests abnormal [Unknown]
  - Pallor [Unknown]
  - Toxicity to various agents [Unknown]
  - Respiratory rate decreased [Unknown]
  - Somnolence [Recovering/Resolving]
  - Rales [Unknown]
  - Illness [Unknown]
  - Hypopnoea [Recovering/Resolving]
  - Heart rate increased [Unknown]

NARRATIVE: CASE EVENT DATE: 20201010
